FAERS Safety Report 9826896 (Version 1)
Quarter: 2013Q4

REPORT INFORMATION
  Report Type: Spontaneous
  Country: US (occurrence: None)
  Receive Date: 20131112
  Receipt Date: 20131112
  Transmission Date: 20140711
  Serious: No
  Sender: FDA-Public Use
  Company Number: US-012859

PATIENT
  Age: 65 Year
  Sex: Male

DRUGS (3)
  1. PICO-SALAX (NOT SPECIFIED) [Suspect]
     Indication: PRODUCT USED FOR UNKNOWN INDICATION
     Dosage: PATIENT USED SPLIT-DOSE METHOD: 1ST DOSE TAKEN AT APPROXIMATELY 4 PM CST ON 28 AUG 2013
     Dates: start: 20130828
  2. LIPITOR [Concomitant]
  3. DIOVAN [Concomitant]

REACTIONS (2)
  - Treatment noncompliance [None]
  - No adverse event [None]
